FAERS Safety Report 6673851-0 (Version None)
Quarter: 2010Q2

REPORT INFORMATION
  Report Type: 
  Country: None (occurrence: None)
  Receive Date: 20100407
  Receipt Date: 20100328
  Transmission Date: 20101027
  Serious: Yes (Other)
  Sender: FDA-Public Use
  Company Number: 2010SP018755

PATIENT
  Age: 20 Year
  Sex: Female

DRUGS (1)
  1. IMPLANON [Suspect]
     Indication: CONTRACEPTION
     Dosage: 68 MG;SUBD
     Route: 059
     Dates: start: 20080101

REACTIONS (3)
  - AMENORRHOEA [None]
  - BREAST CYST [None]
  - BREAST NEOPLASM [None]
